FAERS Safety Report 12564723 (Version 1)
Quarter: 2016Q3

REPORT INFORMATION
  Report Type: Spontaneous
  Country: US (occurrence: None)
  Receive Date: 20160715
  Receipt Date: 20160715
  Transmission Date: 20161109
  Serious: Yes (Other)
  Sender: FDA-Public Use
  Company Number: None

PATIENT
  Age: 53 Year
  Sex: Female

DRUGS (37)
  1. EFFEXOR [Concomitant]
     Active Substance: VENLAFAXINE HYDROCHLORIDE
  2. HALOPERIDOL. [Concomitant]
     Active Substance: HALOPERIDOL
  3. DULCOLAX NOS [Concomitant]
     Active Substance: BISACODYL OR DOCUSATE SODIUM
  4. GLIPIZIDE. [Concomitant]
     Active Substance: GLIPIZIDE
  5. METOPROLOL TARTRATE. [Concomitant]
     Active Substance: METOPROLOL TARTRATE
  6. BUSPIRONE HCL [Concomitant]
     Active Substance: BUSPIRONE HYDROCHLORIDE
  7. SINGULAIR [Concomitant]
     Active Substance: MONTELUKAST SODIUM
  8. LATUDA [Concomitant]
     Active Substance: LURASIDONE HYDROCHLORIDE
  9. LORTAB [Concomitant]
     Active Substance: ACETAMINOPHEN\HYDROCODONE BITARTRATE
  10. OMEPRAZOLE. [Concomitant]
     Active Substance: OMEPRAZOLE
  11. STOOL SOFTENER [Concomitant]
     Active Substance: DOCUSATE CALCIUM
  12. MIRALAX [Concomitant]
     Active Substance: POLYETHYLENE GLYCOL 3350
  13. CARVEDILOL. [Concomitant]
     Active Substance: CARVEDILOL
  14. LANTUS [Concomitant]
     Active Substance: INSULIN GLARGINE
  15. KETOPROFEN. [Concomitant]
     Active Substance: KETOPROFEN
  16. PROLIA [Suspect]
     Active Substance: DENOSUMAB
     Indication: OSTEOPOROSIS
     Dosage: 60MG EVERY 6 MONTHS SUBCUTANEOUSLY
     Route: 058
     Dates: start: 20131113
  17. ATIVAN [Concomitant]
     Active Substance: LORAZEPAM
  18. FLONASE [Concomitant]
     Active Substance: FLUTICASONE PROPIONATE
  19. VITAMIN D [Concomitant]
     Active Substance: CHOLECALCIFEROL
  20. NEURONTIN [Concomitant]
     Active Substance: GABAPENTIN
  21. TEMAZEPAM. [Concomitant]
     Active Substance: TEMAZEPAM
  22. MAGNESIUM CITRATE. [Concomitant]
     Active Substance: MAGNESIUM CITRATE
  23. DOXAZOSIN MESYLATE. [Concomitant]
     Active Substance: DOXAZOSIN MESYLATE
  24. METFORMIN [Concomitant]
     Active Substance: METFORMIN HYDROCHLORIDE
  25. HUMALOG [Concomitant]
     Active Substance: INSULIN LISPRO
  26. PROAIR HFA [Concomitant]
     Active Substance: ALBUTEROL SULFATE
  27. CEPHALEXIN. [Concomitant]
     Active Substance: CEPHALEXIN
  28. VENIAFAXINE HCL [Concomitant]
  29. SYMBICORT [Concomitant]
     Active Substance: BUDESONIDE\FORMOTEROL FUMARATE DIHYDRATE
  30. FLEET ENEMA [Concomitant]
     Active Substance: SODIUM PHOSPHATE, DIBASIC\SODIUM PHOSPHATE, MONOBASIC
  31. HYDROMORPHONE [Concomitant]
     Active Substance: HYDROMORPHONE
  32. CRESTOR [Concomitant]
     Active Substance: ROSUVASTATIN CALCIUM
  33. TRAZODONE HYDROCHLORIDE. [Concomitant]
     Active Substance: TRAZODONE HYDROCHLORIDE
  34. MOBIC [Concomitant]
     Active Substance: MELOXICAM
  35. OXYCODONE [Concomitant]
     Active Substance: OXYCODONE
  36. FLUDROCORTISONE ACETATE. [Concomitant]
     Active Substance: FLUDROCORTISONE ACETATE
  37. ZANAFLEX [Concomitant]
     Active Substance: TIZANIDINE HYDROCHLORIDE

REACTIONS (1)
  - Pancreatic carcinoma [None]

NARRATIVE: CASE EVENT DATE: 20160627
